FAERS Safety Report 7885326-1 (Version None)
Quarter: 2011Q4

REPORT INFORMATION
  Report Type: 
  Country: None (occurrence: None)
  Receive Date: 20111102
  Receipt Date: 20111024
  Transmission Date: 20120403
  Serious: Yes (Hospitalization)
  Sender: FDA-Public Use
  Company Number: FR-ASTRAZENECA-2011SE64225

PATIENT
  Age: 26323 Day
  Sex: Male

DRUGS (7)
  1. ZOLADEX [Suspect]
     Indication: PROSTATE CANCER
     Route: 058
     Dates: start: 20020101, end: 20110906
  2. IRBESARTAN [Concomitant]
  3. CASODEX [Concomitant]
     Indication: PROSTATE CANCER
     Route: 048
     Dates: start: 20110801
  4. ZOMETA [Suspect]
     Indication: PROSTATE CANCER
     Route: 042
     Dates: start: 20110907, end: 20110907
  5. GLIMEPIRIDE [Concomitant]
  6. KETOPROFEN [Concomitant]
  7. METFORMIN HCL [Concomitant]
     Dosage: LONG LASTING TREATMENT

REACTIONS (2)
  - PYREXIA [None]
  - CONVULSION [None]
